FAERS Safety Report 4944819-7 (Version None)
Quarter: 2006Q1

REPORT INFORMATION
  Report Type: 
  Country: None (occurrence: None)
  Receive Date: 20060315
  Receipt Date: 20050829
  Transmission Date: 20060701
  Serious: Yes (Hospitalization, Other)
  Sender: FDA-Public Use
  Company Number: US-MERCK-0508USA05071

PATIENT
  Age: 66 Year
  Sex: Male
  Weight: 105 kg

DRUGS (18)
  1. CELEBREX [Concomitant]
     Route: 048
  2. MECLIZINE [Concomitant]
     Route: 048
  3. WARFARIN [Concomitant]
     Route: 048
  4. LEVAQUIN [Concomitant]
     Route: 048
  5. BONINE [Concomitant]
     Route: 065
  6. VIOXX [Suspect]
     Indication: PAIN
     Route: 048
     Dates: start: 20010101, end: 20041001
  7. VIOXX [Suspect]
     Indication: ARTHRITIS
     Route: 048
     Dates: start: 20010101, end: 20041001
  8. ASPIRIN [Concomitant]
     Route: 065
  9. NORVASC [Concomitant]
     Indication: HYPERTENSION
     Route: 048
  10. LIPITOR [Concomitant]
     Indication: HYPERLIPIDAEMIA
     Route: 048
  11. PRAVACHOL [Concomitant]
     Indication: HYPERLIPIDAEMIA
     Route: 048
  12. ATARAX [Concomitant]
     Route: 048
  13. HYDROXYZINE HYDROCHLORIDE [Concomitant]
     Route: 065
  14. ATROSEPT [Concomitant]
     Route: 065
  15. ALTACE [Concomitant]
     Route: 065
  16. INDERAL LA [Concomitant]
     Route: 048
  17. LASIX [Concomitant]
     Route: 048
  18. LANOXIN [Concomitant]
     Route: 048

REACTIONS (24)
  - ANAEMIA [None]
  - ANXIETY [None]
  - ATRIAL FIBRILLATION [None]
  - BRADYCARDIA [None]
  - CARDIOMEGALY [None]
  - CEREBROVASCULAR ACCIDENT [None]
  - DEHYDRATION [None]
  - DYSPHAGIA [None]
  - HEART RATE IRREGULAR [None]
  - HYPERLIPIDAEMIA [None]
  - HYPERTENSION [None]
  - HYPOVOLAEMIA [None]
  - IRRITABILITY [None]
  - LABYRINTHITIS [None]
  - LACUNAR INFARCTION [None]
  - NAUSEA [None]
  - OEDEMA [None]
  - RENAL FAILURE ACUTE [None]
  - SINUS CONGESTION [None]
  - TRANSIENT ISCHAEMIC ATTACK [None]
  - URINARY TRACT INFECTION [None]
  - VERTIGO [None]
  - VIRAEMIA [None]
  - VOMITING [None]
